FAERS Safety Report 8156269-3 (Version None)
Quarter: 2012Q1

REPORT INFORMATION
  Report Type: 
  Country: None (occurrence: None)
  Receive Date: 20120103
  Receipt Date: 20110926
  Transmission Date: 20120608
  Serious: No
  Sender: FDA-Public Use
  Company Number: AE-2011-000786

PATIENT
  Age: 36 Year
  Sex: Female
  Weight: 70.3075 kg

DRUGS (5)
  1. COPEGUS [Concomitant]
  2. INCIVEK [Suspect]
     Dosage: 2250 MG (750 MG, 3 IN 1 D), ORAL
     Route: 048
     Dates: start: 20110803
  3. PEGASYS [Concomitant]
  4. NEURONTIN [Concomitant]
  5. PRILOSEC [Concomitant]

REACTIONS (1)
  - RASH PRURITIC [None]
